FAERS Safety Report 13861750 (Version 2)
Quarter: 2017Q3

REPORT INFORMATION
  Report Type: Report from Study
  Country: US (occurrence: US)
  Receive Date: 20170811
  Receipt Date: 20170911
  Transmission Date: 20171127
  Serious: Yes (Death)
  Sender: FDA-Public Use
  Company Number: US-PFIZER INC-2017343286

PATIENT
  Age: 53 Year
  Sex: Female

DRUGS (4)
  1. DOXEPIN [Suspect]
     Active Substance: DOXEPIN
     Dosage: UNK
  2. CARISOPRODOL. [Suspect]
     Active Substance: CARISOPRODOL
     Dosage: UNK
  3. AMLODIPINE BESILATE [Suspect]
     Active Substance: AMLODIPINE BESYLATE
     Dosage: UNK
  4. CLONAZEPAM. [Suspect]
     Active Substance: CLONAZEPAM
     Dosage: UNK

REACTIONS (12)
  - Toxicity to various agents [Fatal]
  - Hyperreflexia [Fatal]
  - Tremor [Fatal]
  - Bradycardia [Fatal]
  - Electrocardiogram QT prolonged [Fatal]
  - Hypoglycaemia [Fatal]
  - Arrhythmia [Fatal]
  - Respiratory depression [Fatal]
  - Electrocardiogram QRS complex prolonged [Fatal]
  - Depressed level of consciousness [Fatal]
  - Coma [Fatal]
  - Hypotension [Fatal]
